FAERS Safety Report 17570695 (Version 2)
Quarter: 2020Q2

REPORT INFORMATION
  Report Type: Spontaneous
  Country: CZ (occurrence: CZ)
  Receive Date: 20200323
  Receipt Date: 20200625
  Transmission Date: 20200713
  Serious: Yes (Other)
  Sender: FDA-Public Use
  Company Number: CZ-BRISTOL-MYERS SQUIBB COMPANY-BMS-2020-023070

PATIENT
  Age: 52 Year
  Sex: Male

DRUGS (1)
  1. NIVOLUMAB [Suspect]
     Active Substance: NIVOLUMAB
     Indication: MALIGNANT MELANOMA
     Dosage: 240 MILLIGRAM, Q2WK
     Route: 042
     Dates: start: 20190731

REACTIONS (14)
  - Tremor [Unknown]
  - Fatigue [Unknown]
  - Nephritis [Unknown]
  - Back pain [Unknown]
  - Abdominal discomfort [Unknown]
  - Arthralgia [Unknown]
  - Taste disorder [Unknown]
  - Decreased appetite [Unknown]
  - Seizure [Unknown]
  - Anaemia [Unknown]
  - Renal impairment [Unknown]
  - Tri-iodothyronine increased [Unknown]
  - Blood thyroid stimulating hormone decreased [Unknown]
  - Thyroxine increased [Unknown]

NARRATIVE: CASE EVENT DATE: 20190905
